FAERS Safety Report 9659719 (Version 2)
Quarter: 2013Q4

REPORT INFORMATION
  Report Type: Spontaneous
  Country: US (occurrence: None)
  Receive Date: 20131029
  Receipt Date: 20131209
  Transmission Date: 20140711
  Serious: Yes (Death, Hospitalization)
  Sender: FDA-Public Use
  Company Number: US-000832

PATIENT
  Age: 58 Year
  Sex: Male

DRUGS (2)
  1. GATTEX [Suspect]
     Indication: SHORT-BOWEL SYNDROME
     Dosage: 0.13 ML QD, STREN/VOLUM: 0.13 ML/FREQU: 1 X D SUBCUTANEOUS
     Route: 058
     Dates: start: 20131018, end: 2013
  2. SOLUTIONS FOR PARENTERAL NUTRITION [Concomitant]

REACTIONS (2)
  - Disease complication [None]
  - Crohn^s disease [None]
